FAERS Safety Report 17687296 (Version 1)
Quarter: 2020Q2

REPORT INFORMATION
  Report Type: Spontaneous
  Country: US (occurrence: US)
  Receive Date: 20200421
  Receipt Date: 20200421
  Transmission Date: 20200714
  Serious: No
  Sender: FDA-Public Use
  Company Number: US-ELI_LILLY_AND_COMPANY-US202004004835

PATIENT
  Sex: Male

DRUGS (2)
  1. HUMULIN R [Suspect]
     Active Substance: INSULIN HUMAN
     Indication: DIABETES MELLITUS
     Dosage: 200 U, DAILY
     Route: 058
     Dates: start: 201910
  2. HUMULIN R [Suspect]
     Active Substance: INSULIN HUMAN
     Dosage: 60 U, DAILY (50-60 UNITS)
     Route: 058

REACTIONS (4)
  - Wrong technique in product usage process [Unknown]
  - Weight decreased [Unknown]
  - Incorrect product administration duration [Unknown]
  - Incorrect dose administered [Unknown]
